FAERS Safety Report 4588935-0 (Version None)
Quarter: 2005Q1

REPORT INFORMATION
  Report Type: 
  Country: None (occurrence: None)
  Receive Date: 20050216
  Receipt Date: 20050131
  Transmission Date: 20050727
  Serious: Yes (Hospitalization)
  Sender: FDA-Public Use
  Company Number: USA050289650

PATIENT
  Age: 75 Year
  Sex: Female
  Weight: 78 kg

DRUGS (3)
  1. HUMULIN R [Suspect]
     Indication: DIABETES MELLITUS
     Dosage: 51 U DAY
     Dates: start: 19860101
  2. LANTUS [Concomitant]
     Indication: DIABETES MELLITUS
     Dosage: 51 U DAT
     Dates: start: 19960101
  3. LANTUS [Concomitant]

REACTIONS (5)
  - BLOOD GLUCOSE INCREASED [None]
  - LEG AMPUTATION [None]
  - MYOCARDIAL INFARCTION [None]
  - NASOPHARYNGITIS [None]
  - PERIPHERAL VASCULAR DISORDER [None]
